FAERS Safety Report 23020386 (Version 1)
Quarter: 2023Q4

REPORT INFORMATION
  Report Type: Spontaneous
  Country: US (occurrence: None)
  Receive Date: 20231002
  Receipt Date: 20231002
  Transmission Date: 20240109
  Serious: Yes (Hospitalization, Other)
  Sender: FDA-Public Use
  Company Number: None

PATIENT
  Age: 45 Year
  Sex: Female
  Weight: 78.75 kg

DRUGS (6)
  1. OZEMPIC [Suspect]
     Active Substance: SEMAGLUTIDE
     Indication: Weight decreased
     Dates: start: 20210724, end: 20230620
  2. ESTROGENS [Concomitant]
     Active Substance: ESTROGENS
  3. PROGESTERONE [Concomitant]
     Active Substance: PROGESTERONE
  4. cholestipol [Concomitant]
  5. pepto bismuth [Concomitant]
  6. LOMOTIL [Concomitant]
     Active Substance: ATROPINE SULFATE\DIPHENOXYLATE HYDROCHLORIDE

REACTIONS (2)
  - Small intestinal obstruction [None]
  - Economic problem [None]

NARRATIVE: CASE EVENT DATE: 20221030
